FAERS Safety Report 11379898 (Version 1)
Quarter: 2015Q3

REPORT INFORMATION
  Report Type: Other
  Country: JP (occurrence: JP)
  Receive Date: 20150814
  Receipt Date: 20150814
  Transmission Date: 20151125
  Serious: No
  Sender: FDA-Public Use
  Company Number: JP-LUPIN PHARMACEUTICALS INC.-2014-01729

PATIENT
  Age: 6 Decade
  Sex: Female

DRUGS (2)
  1. AMLODIPINE AMEL [Suspect]
     Active Substance: AMLODIPINE BESYLATE
     Indication: HYPERTENSION
     Route: 048
     Dates: start: 2014, end: 2014
  2. AMLODIPINE AMEL [Suspect]
     Active Substance: AMLODIPINE BESYLATE
     Route: 048
     Dates: start: 2014, end: 2014

REACTIONS (5)
  - Oropharyngeal pain [Recovered/Resolved]
  - Hot flush [Recovered/Resolved]
  - Ocular hyperaemia [Unknown]
  - Discomfort [Unknown]
  - Feeling hot [Recovered/Resolved]

NARRATIVE: CASE EVENT DATE: 20140416
